FAERS Safety Report 18903071 (Version 1)
Quarter: 2021Q1

REPORT INFORMATION
  Report Type: Spontaneous
  Country: US (occurrence: US)
  Receive Date: 20210216
  Receipt Date: 20210216
  Transmission Date: 20210420
  Serious: No
  Sender: FDA-Public Use
  Company Number: US-CELLTRION INC.-2021US001600

PATIENT

DRUGS (3)
  1. TRUXIMA [Suspect]
     Active Substance: RITUXIMAB-ABBS
     Dosage: 787.5 MG D1, D8, D15, D22 PRN X12
     Dates: start: 20210208
  2. TRUXIMA [Suspect]
     Active Substance: RITUXIMAB-ABBS
     Dosage: 787.5 MG D1, D8, D15, D22 PRN X12
     Dates: start: 20210201
  3. TRUXIMA [Suspect]
     Active Substance: RITUXIMAB-ABBS
     Indication: CHRONIC GRAFT VERSUS HOST DISEASE
     Dosage: 787.5 MG D1, D8, D15, D22 PRN X12
     Dates: start: 20210125

REACTIONS (1)
  - Off label use [Unknown]
